FAERS Safety Report 11075342 (Version 1)
Quarter: 2015Q2

REPORT INFORMATION
  Report Type: Spontaneous
  Country: US (occurrence: None)
  Receive Date: 20150428
  Receipt Date: 20150428
  Transmission Date: 20150821
  Serious: Yes (Other)
  Sender: FDA-Public Use
  Company Number: None

PATIENT
  Age: 40 Year
  Sex: Female
  Weight: 52.16 kg

DRUGS (8)
  1. ADDERALL [Suspect]
     Active Substance: AMPHETAMINE ASPARTATE\AMPHETAMINE SULFATE\DEXTROAMPHETAMINE SACCHARATE\DEXTROAMPHETAMINE SULFATE
     Indication: ATTENTION DEFICIT/HYPERACTIVITY DISORDER
     Dosage: 5 MG, 150 TABS, BID, ORAL
     Route: 048
  2. PREVASID [Concomitant]
  3. RESTORIL [Concomitant]
     Active Substance: TEMAZEPAM
  4. DAULILAUDE [Concomitant]
  5. KOSAR [Concomitant]
  6. IRON [Concomitant]
     Active Substance: IRON
  7. MORPHINE [Concomitant]
     Active Substance: MORPHINE
  8. KLONOPIN [Concomitant]
     Active Substance: CLONAZEPAM

REACTIONS (2)
  - Product substitution issue [None]
  - Suicidal behaviour [None]

NARRATIVE: CASE EVENT DATE: 20000101
